FAERS Safety Report 8376101-2 (Version None)
Quarter: 2012Q2

REPORT INFORMATION
  Report Type: 
  Country: None (occurrence: None)
  Receive Date: 20120522
  Receipt Date: 20120517
  Transmission Date: 20120825
  Serious: Yes (Life-Threatening, Hospitalization)
  Sender: FDA-Public Use
  Company Number: US-BAYER-2011-067578

PATIENT
  Age: 15 Year
  Sex: Female
  Weight: 64 kg

DRUGS (8)
  1. ZOLOFT [Concomitant]
     Indication: ANXIETY
     Dosage: UNK
     Dates: start: 20020101
  2. PERCOCET [Concomitant]
  3. YAZ [Suspect]
     Indication: CONTRACEPTION
     Dosage: UNK
     Dates: start: 20081120, end: 20081220
  4. DROSPIRENONE AND ETHINYL ESTRADIOL [Suspect]
     Indication: CONTRACEPTION
     Dosage: UNK
     Dates: start: 20081230, end: 20091218
  5. GABAPENTIN [Concomitant]
     Indication: MOOD ALTERED
     Dosage: UNK
     Dates: start: 20060101
  6. OXYCODONE HCL AND ACETAMINOPHEN [Concomitant]
     Indication: PAIN
  7. AMOXICILLIN [Concomitant]
     Indication: ANTIBIOTIC THERAPY
  8. METRONIDAZOLE [Concomitant]
     Indication: ANTIBIOTIC THERAPY

REACTIONS (6)
  - ANXIETY [None]
  - INJURY [None]
  - ANHEDONIA [None]
  - APPENDICITIS [None]
  - PAIN [None]
  - DEEP VEIN THROMBOSIS [None]
